FAERS Safety Report 9758815 (Version 1)
Quarter: 2013Q4

REPORT INFORMATION
  Report Type: Spontaneous
  Country: US (occurrence: None)
  Receive Date: 20131216
  Receipt Date: 20131216
  Transmission Date: 20140711
  Serious: No
  Sender: FDA-Public Use
  Company Number: TH-2012-00612

PATIENT
  Age: 58 Year
  Sex: Male

DRUGS (1)
  1. EGRIFTA [Suspect]
     Dosage: 1 IN 1 D?

REACTIONS (2)
  - Joint destruction [None]
  - Arthralgia [None]
